FAERS Safety Report 17068899 (Version 1)
Quarter: 2019Q4

REPORT INFORMATION
  Report Type: Spontaneous
  Country: US (occurrence: US)
  Receive Date: 20191024
  Receipt Date: 20191024
  Transmission Date: 20200122
  Serious: No
  Sender: FDA-Public Use
  Company Number: None

PATIENT

DRUGS (2)
  1. ROZEREM [Suspect]
     Active Substance: RAMELTEON
  2. REMERON [Suspect]
     Active Substance: MIRTAZAPINE

REACTIONS (2)
  - Intercepted product prescribing error [None]
  - Product name confusion [None]
